FAERS Safety Report 12686306 (Version 1)
Quarter: 2016Q3

REPORT INFORMATION
  Report Type: Spontaneous
  Country: US (occurrence: US)
  Receive Date: 20160825
  Receipt Date: 20160825
  Transmission Date: 20161109
  Serious: No
  Sender: FDA-Public Use
  Company Number: US-JAZZ-2016-US-006924

PATIENT
  Sex: Female

DRUGS (45)
  1. XYREM [Suspect]
     Active Substance: SODIUM OXYBATE
     Dosage: 3 G, BID
     Route: 048
     Dates: start: 200804, end: 200806
  2. XYREM [Suspect]
     Active Substance: SODIUM OXYBATE
     Dosage: 4.5 G, BID
     Route: 048
     Dates: start: 201109
  3. DICLOFENAC [Concomitant]
     Active Substance: DICLOFENAC
  4. HYDROXYZINE HCL [Concomitant]
     Active Substance: HYDROXYZINE HYDROCHLORIDE
  5. PROTONIX [Concomitant]
     Active Substance: PANTOPRAZOLE SODIUM
  6. VOLTAREN [Concomitant]
     Active Substance: DICLOFENAC SODIUM
  7. GABAPENTIN. [Concomitant]
     Active Substance: GABAPENTIN
  8. METAXALONE. [Concomitant]
     Active Substance: METAXALONE
  9. ATORVASTATIN [Concomitant]
     Active Substance: ATORVASTATIN
  10. LIDOCAINE. [Concomitant]
     Active Substance: LIDOCAINE
  11. XYREM [Suspect]
     Active Substance: SODIUM OXYBATE
     Dosage: 3.75 G, BID
     Route: 048
     Dates: start: 201108, end: 201109
  12. DULCOLAX NOS [Concomitant]
     Active Substance: BISACODYL OR DOCUSATE SODIUM
  13. HYDROCODONE [Concomitant]
     Active Substance: HYDROCODONE
  14. OPANA [Concomitant]
     Active Substance: OXYMORPHONE HYDROCHLORIDE
  15. NORVASC [Concomitant]
     Active Substance: AMLODIPINE BESYLATE
  16. NYQUIL COLD AND FLU [Concomitant]
     Active Substance: ACETAMINOPHEN\DEXTROMETHORPHAN HYDROBROMIDE\DOXYLAMINE SUCCINATE
  17. XYREM [Suspect]
     Active Substance: SODIUM OXYBATE
     Dosage: 2.25 G, BID
     Route: 048
     Dates: start: 201108, end: 201108
  18. FENTANYL. [Concomitant]
     Active Substance: FENTANYL
  19. KETOROLAC [Concomitant]
     Active Substance: KETOROLAC\KETOROLAC TROMETHAMINE
  20. NORCO [Concomitant]
     Active Substance: ACETAMINOPHEN\HYDROCODONE BITARTRATE
  21. PREDNISONE. [Concomitant]
     Active Substance: PREDNISONE
  22. PROAIR HFA [Concomitant]
     Active Substance: ALBUTEROL SULFATE
  23. SINGULAIR [Concomitant]
     Active Substance: MONTELUKAST SODIUM
  24. FENTANYL. [Concomitant]
     Active Substance: FENTANYL
  25. GUAIFENESIN. [Concomitant]
     Active Substance: GUAIFENESIN
  26. VITAMIN D [Concomitant]
     Active Substance: CHOLECALCIFEROL
  27. CHLORZOXAZONE. [Concomitant]
     Active Substance: CHLORZOXAZONE
  28. DIPHENHYDRAMINE. [Concomitant]
     Active Substance: DIPHENHYDRAMINE
  29. ULTRAM [Concomitant]
     Active Substance: TRAMADOL HYDROCHLORIDE
  30. EPIPEN [Concomitant]
     Active Substance: EPINEPHRINE
  31. MEGESTROL [Concomitant]
     Active Substance: MEGESTROL
  32. PROMETHAZINE [Concomitant]
     Active Substance: PROMETHAZINE\PROMETHAZINE HYDROCHLORIDE
  33. CLONAZEPAM. [Concomitant]
     Active Substance: CLONAZEPAM
  34. XYREM [Suspect]
     Active Substance: SODIUM OXYBATE
     Indication: NARCOLEPSY
     Dosage: 2.25 G, BID
     Route: 048
     Dates: start: 200803, end: 200804
  35. LYRICA [Concomitant]
     Active Substance: PREGABALIN
  36. ADDERALL [Concomitant]
     Active Substance: AMPHETAMINE ASPARTATE\AMPHETAMINE SULFATE\DEXTROAMPHETAMINE SACCHARATE\DEXTROAMPHETAMINE SULFATE
  37. LIDODERM [Concomitant]
     Active Substance: LIDOCAINE
  38. METHYLPHENIDATE. [Concomitant]
     Active Substance: METHYLPHENIDATE
  39. TREXIMET [Concomitant]
     Active Substance: NAPROXEN SODIUM\SUMATRIPTAN SUCCINATE
  40. XYREM [Suspect]
     Active Substance: SODIUM OXYBATE
     Dosage: 4.5 G, BID
     Route: 048
     Dates: start: 200806, end: 200811
  41. XYREM [Suspect]
     Active Substance: SODIUM OXYBATE
     Dosage: 2.25 G, BID
     Route: 048
     Dates: start: 201011
  42. PROVIGIL [Concomitant]
     Active Substance: MODAFINIL
  43. TRAZODONE [Concomitant]
     Active Substance: TRAZODONE HYDROCHLORIDE
  44. AMITIZA [Concomitant]
     Active Substance: LUBIPROSTONE
  45. ASPIRIN. [Concomitant]
     Active Substance: ASPIRIN

REACTIONS (3)
  - Ear infection [Unknown]
  - Insomnia [Unknown]
  - Sinusitis [Unknown]
